FAERS Safety Report 11773228 (Version 1)
Quarter: 2015Q4

REPORT INFORMATION
  Report Type: Spontaneous
  Country: JP (occurrence: JP)
  Receive Date: 20151124
  Receipt Date: 20151124
  Transmission Date: 20160304
  Serious: Yes (Other)
  Sender: FDA-Public Use
  Company Number: JP-009507513-1509JPN011292

PATIENT
  Sex: Male

DRUGS (3)
  1. CYMBALTA [Concomitant]
     Active Substance: DULOXETINE HYDROCHLORIDE
     Dosage: DAILY DOSE UNKNOWN
     Route: 065
  2. REMERON [Suspect]
     Active Substance: MIRTAZAPINE
     Indication: PAIN
     Dosage: DAILY DOSAGE UNKNOWN
     Route: 048
     Dates: start: 2011
  3. REMERON [Suspect]
     Active Substance: MIRTAZAPINE
     Dosage: DAILY DOSAGE UNKNOWN
     Route: 048
     Dates: start: 20150918

REACTIONS (3)
  - Bladder cancer [Unknown]
  - Somnolence [Unknown]
  - Weight increased [Unknown]
